FAERS Safety Report 21471908 (Version 1)
Quarter: 2022Q4

REPORT INFORMATION
  Report Type: Spontaneous
  Country: CL (occurrence: CL)
  Receive Date: 20221018
  Receipt Date: 20221018
  Transmission Date: 20230113
  Serious: Yes (Other)
  Sender: FDA-Public Use
  Company Number: CL-PFIZER INC-202200091338

PATIENT
  Age: 60 Year
  Sex: Male

DRUGS (2)
  1. INLYTA [Suspect]
     Active Substance: AXITINIB
     Dosage: UNK
     Dates: start: 20210104, end: 202108
  2. INLYTA [Suspect]
     Active Substance: AXITINIB
     Dosage: 5 MG, 2X/DAY( EVERY 12 HOURS)
     Route: 048
     Dates: end: 202207

REACTIONS (7)
  - Anal abscess [Unknown]
  - Haemoptysis [Unknown]
  - Inguinal mass [Unknown]
  - Pruritus [Not Recovered/Not Resolved]
  - Burning sensation [Unknown]
  - Rash [Unknown]
  - Hypersensitivity [Unknown]

NARRATIVE: CASE EVENT DATE: 20220201
